FAERS Safety Report 9754662 (Version 1)
Quarter: 2013Q4

REPORT INFORMATION
  Report Type: Spontaneous
  Country: US (occurrence: US)
  Receive Date: 20131213
  Receipt Date: 20131213
  Transmission Date: 20140711
  Serious: No
  Sender: FDA-Public Use
  Company Number: US-GLAXOSMITHKLINE-A1003525A

PATIENT
  Age: 62 Year
  Sex: Female

DRUGS (2)
  1. WALGREENS NICOTINE TRANSDERMAL SYSTEM PATCH CLEAR, 14MG [Suspect]
     Indication: EX-TOBACCO USER
     Dates: start: 20121109
  2. WALGREENS NICOTINE TRANSDERMAL SYSTEM PATCH CLEAR, 21MG [Suspect]
     Indication: EX-TOBACCO USER
     Dates: start: 20121109

REACTIONS (10)
  - Malaise [Not Recovered/Not Resolved]
  - Feeling abnormal [Not Recovered/Not Resolved]
  - Chest discomfort [Not Recovered/Not Resolved]
  - Middle insomnia [Not Recovered/Not Resolved]
  - Poor quality sleep [Not Recovered/Not Resolved]
  - Cough [Recovered/Resolved]
  - Therapeutic response unexpected [Unknown]
  - Nightmare [Recovered/Resolved]
  - Abnormal dreams [Recovered/Resolved]
  - Drug administration error [Unknown]
